FAERS Safety Report 4730791-1 (Version None)
Quarter: 2005Q3

REPORT INFORMATION
  Report Type: 
  Country: None (occurrence: None)
  Receive Date: 20050725
  Receipt Date: 20050512
  Transmission Date: 20060218
  Serious: No
  Sender: FDA-Public Use
  Company Number: USA050597968

PATIENT
  Age: 8 Year
  Sex: Male

DRUGS (1)
  1. STRATTERA [Suspect]
     Dates: start: 20040501

REACTIONS (3)
  - ANOREXIA [None]
  - DYSGEUSIA [None]
  - WEIGHT DECREASED [None]
